FAERS Safety Report 9344262 (Version 3)
Quarter: 2013Q3

REPORT INFORMATION
  Report Type: Spontaneous
  Country: US (occurrence: None)
  Receive Date: 20130610
  Receipt Date: 20130702
  Transmission Date: 20140515
  Serious: Yes (Hospitalization)
  Sender: FDA-Public Use
  Company Number: JPI-P-032649

PATIENT
  Age: 74 Year
  Sex: Male
  Weight: 93.44 kg

DRUGS (1)
  1. XYREM (500 MILLIGRAM/MILLILITERS, SOLUTION) (SODIUM OXYBATE) [Suspect]
     Indication: PRODUCT USED FOR UNKNOWN INDICATION
     Dosage: (2.25 GM, 2 IN 1 D)
     Route: 048
     Dates: start: 20050705

REACTIONS (3)
  - Staphylococcal infection [None]
  - Knee arthroplasty [None]
  - Aspiration [None]
